FAERS Safety Report 6442007-9 (Version None)
Quarter: 2009Q4

REPORT INFORMATION
  Report Type: 
  Country: None (occurrence: None)
  Receive Date: 20091116
  Receipt Date: 20091104
  Transmission Date: 20100525
  Serious: Yes (Other)
  Sender: FDA-Public Use
  Company Number: US-PFIZER INC-2009284572

PATIENT
  Sex: Female

DRUGS (2)
  1. GEODON [Suspect]
     Dosage: UNK
  2. VALSARTAN [Suspect]
     Dosage: UNK

REACTIONS (4)
  - ANXIETY [None]
  - HYPERTENSION [None]
  - PALPITATIONS [None]
  - SCHIZOPHRENIA [None]
